FAERS Safety Report 6336720-1 (Version None)
Quarter: 2009Q3

REPORT INFORMATION
  Report Type: 
  Country: None (occurrence: None)
  Receive Date: 20090901
  Receipt Date: 20090820
  Transmission Date: 20100115
  Serious: Yes (Hospitalization)
  Sender: FDA-Public Use
  Company Number: FR-WYE-H10752009

PATIENT
  Sex: Female

DRUGS (7)
  1. CORDARONE [Suspect]
     Indication: ARRHYTHMIA
     Route: 048
     Dates: start: 20030101
  2. COUMADIN [Concomitant]
     Dosage: UNSPECIFIED
     Route: 048
  3. ACTRAPID HUMAN [Concomitant]
     Dosage: UNSPECIFIED
     Route: 058
  4. DIFFU K [Concomitant]
     Dosage: UNSPECIFIED
     Route: 048
  5. XANAX [Concomitant]
     Dosage: UNSPECIFIED
     Route: 048
  6. IMUREL [Suspect]
     Indication: PROCTOCOLITIS
     Route: 048
     Dates: start: 20040301
  7. LEVOTHYROXINE SODIUM [Concomitant]
     Dosage: UNSPECIFIED
     Route: 048

REACTIONS (2)
  - CHRONIC HEPATITIS [None]
  - COAGULATION FACTOR V LEVEL DECREASED [None]
